FAERS Safety Report 6378755-9 (Version None)
Quarter: 2009Q3

REPORT INFORMATION
  Report Type: 
  Country: None (occurrence: None)
  Receive Date: 20090928
  Receipt Date: 20090831
  Transmission Date: 20100115
  Serious: Yes (Hospitalization)
  Sender: FDA-Public Use
  Company Number: NZ-ASTRAZENECA-2009SE14405

PATIENT
  Age: 10493 Day
  Sex: Female

DRUGS (3)
  1. OMEPRAZOLE [Suspect]
     Indication: POISONING DELIBERATE
     Dates: start: 20020227, end: 20020227
  2. ACETYLCYSTEINE [Suspect]
     Indication: POISONING DELIBERATE
     Dosage: TWO SINGLE DOSES
     Route: 042
     Dates: start: 20020227, end: 20020227
  3. PARACETAMOL [Suspect]
     Indication: POISONING DELIBERATE
     Dosage: 24 GM ONCE
     Route: 048
     Dates: start: 20020227, end: 20020227

REACTIONS (3)
  - DRUG LEVEL INCREASED [None]
  - PRURITUS [None]
  - URTICARIA [None]
